FAERS Safety Report 8499156-3 (Version None)
Quarter: 2012Q3

REPORT INFORMATION
  Report Type: 
  Country: None (occurrence: None)
  Receive Date: 20120710
  Receipt Date: 20120627
  Transmission Date: 20120928
  Serious: Yes (Disabling)
  Sender: FDA-Public Use
  Company Number: AR-AMGEN-ARGSP2012041094

PATIENT
  Age: 67 Year
  Sex: Female

DRUGS (6)
  1. LOTRIAL                            /00935901/ [Concomitant]
     Dosage: UNK
  2. METICORTEN [Concomitant]
     Dosage: UNK
  3. ENBREL [Suspect]
     Indication: RHEUMATOID ARTHRITIS
     Dosage: 50 MG, WEEKLY
     Route: 058
     Dates: start: 20070901, end: 20120401
  4. METHOTREXATE [Concomitant]
     Dosage: UNK
  5. NAPROXEN [Concomitant]
     Dosage: UNK
  6. CORBIS [Concomitant]
     Dosage: UNK

REACTIONS (4)
  - DRUG INEFFECTIVE [None]
  - ANAEMIA [None]
  - BEDRIDDEN [None]
  - DECREASED APPETITE [None]
